FAERS Safety Report 5135970-X (Version None)
Quarter: 2006Q4

REPORT INFORMATION
  Report Type: 
  Country: None (occurrence: None)
  Receive Date: 20061020
  Receipt Date: 20061011
  Transmission Date: 20070319
  Serious: Yes (Other)
  Sender: FDA-Public Use
  Company Number: 2006091535

PATIENT
  Sex: Male
  Weight: 2.32 kg

DRUGS (3)
  1. DALTEPARIN SODIUM [Suspect]
     Indication: SYSTEMIC LUPUS ERYTHEMATOSUS
     Dosage: 10000 I.U. (5000 I.U., BID), PLACENTAL
     Dates: start: 20060101
  2. PLAQUINOL (HYDROXYCHLOROQUINE SULFATE) [Concomitant]
  3. ASPIRIN [Concomitant]

REACTIONS (3)
  - CAESAREAN SECTION [None]
  - DRUG EXPOSURE DURING PREGNANCY [None]
  - PREMATURE BABY [None]
